FAERS Safety Report 6717335 (Version 3)
Quarter: 2014Q4

REPORT INFORMATION
  Report Type: Report from Study
  Country: JP (occurrence: JP)
  Receive Date: 20080803
  Receipt Date: 20141114
  Transmission Date: 20150529
  Serious: Yes (Death, Hospitalization, Other)
  Sender: FDA-Public Use
  Company Number: PHHY2008JP15394

PATIENT
  Age: 77 Year
  Sex: Male
  Weight: 75 kg

DRUGS (10)
  1. MEROPEN [Concomitant]
     Active Substance: MEROPENEM
     Indication: TYPE 2 DIABETES MELLITUS
     Dosage: 1 G
     Route: 042
     Dates: start: 20080702, end: 20080711
  2. PRIMOBOLAN-DEPOT [Concomitant]
     Active Substance: METHENOLONE ENANTHATE
     Indication: MYELODYSPLASTIC SYNDROME
     Dosage: 15 MG,
     Route: 048
     Dates: end: 20080710
  3. MODACIN [Concomitant]
     Active Substance: CEFTAZIDIME
     Indication: TYPE 2 DIABETES MELLITUS
     Dosage: 2 G,
     Route: 042
     Dates: start: 20080627, end: 20080701
  4. MAGLAX [Concomitant]
     Active Substance: MAGNESIUM OXIDE
     Indication: CONSTIPATION
     Dosage: 1500 MG,
     Route: 048
     Dates: end: 20080710
  5. ICL670A [Suspect]
     Active Substance: DEFERASIROX
     Indication: APLASTIC ANAEMIA
     Dosage: 1500 MG, DAILY
     Route: 048
     Dates: start: 20080620, end: 20080626
  6. AMBISOME [Concomitant]
     Active Substance: AMPHOTERICIN B
     Indication: TYPE 2 DIABETES MELLITUS
     Dosage: 100 MG
     Route: 042
     Dates: start: 20080630, end: 20080701
  7. ICL670A [Suspect]
     Active Substance: DEFERASIROX
     Dosage: 1500 MG, DAILY
     Route: 048
     Dates: start: 20080710, end: 20080711
  8. MINOCYCLINE HYDROCHLORIDE. [Concomitant]
     Active Substance: MINOCYCLINE HYDROCHLORIDE
     Indication: TYPE 2 DIABETES MELLITUS
     Dosage: 200 MG,
     Route: 042
     Dates: start: 20080627, end: 20080701
  9. ALLELOCK [Concomitant]
     Active Substance: OLOPATADINE HYDROCHLORIDE
     Indication: DERMATITIS ALLERGIC
     Dosage: 10 MG,
     Route: 048
     Dates: end: 20080710
  10. VFEND [Concomitant]
     Active Substance: VORICONAZOLE
     Indication: TYPE 2 DIABETES MELLITUS
     Dosage: 200 MG
     Route: 042
     Dates: start: 20080702, end: 20080711

REACTIONS (10)
  - Pleural effusion [Fatal]
  - Hypoglycaemia [Fatal]
  - Disease progression [Unknown]
  - Hepatic function abnormal [Unknown]
  - Pyrexia [Recovering/Resolving]
  - C-reactive protein increased [Not Recovered/Not Resolved]
  - Blood creatinine increased [Unknown]
  - Septic shock [Fatal]
  - Blood urea increased [Unknown]
  - Serum ferritin increased [Unknown]

NARRATIVE: CASE EVENT DATE: 20080627
